FAERS Safety Report 10335591 (Version 1)
Quarter: 2014Q3

REPORT INFORMATION
  Report Type: Spontaneous
  Country: US (occurrence: None)
  Receive Date: 20140722
  Receipt Date: 20140722
  Transmission Date: 20150326
  Serious: Yes (Other)
  Sender: FDA-Public Use
  Company Number: None

PATIENT
  Age: 30 Year
  Sex: Female
  Weight: 71.67 kg

DRUGS (1)
  1. LAMOTRIGINE 150MG TEVA [Suspect]
     Active Substance: LAMOTRIGINE
     Indication: MOOD SWINGS
     Dosage: 2 PILLS ?ONCE DAILY?TAKEN BY MOUTH
     Route: 048
     Dates: start: 20140708, end: 20140718

REACTIONS (9)
  - Feeling of despair [None]
  - Social avoidant behaviour [None]
  - Condition aggravated [None]
  - Self-injurious ideation [None]
  - Drug effect decreased [None]
  - Product substitution issue [None]
  - Mood swings [None]
  - Depression [None]
  - Suicidal ideation [None]

NARRATIVE: CASE EVENT DATE: 20140701
